FAERS Safety Report 5391885-3 (Version None)
Quarter: 2007Q3

REPORT INFORMATION
  Report Type: 
  Country: None (occurrence: None)
  Receive Date: 20070718
  Receipt Date: 20070706
  Transmission Date: 20080115
  Serious: Yes (Hospitalization, Other)
  Sender: FDA-Public Use
  Company Number: 234134K07USA

PATIENT
  Age: 5 Year
  Sex: Female
  Weight: 17.6903 kg

DRUGS (1)
  1. REBIF [Suspect]
     Indication: OFF LABEL USE
     Dosage: 22 MCG, 3 IN 1 WEEKS, SUBCUTANEOUS
     Route: 058
     Dates: start: 20060323

REACTIONS (2)
  - CEREBRAL HAEMORRHAGE [None]
  - FEBRILE CONVULSION [None]
